FAERS Safety Report 8947967 (Version 1)
Quarter: 2012Q4

REPORT INFORMATION
  Report Type: Spontaneous
  Country: BR (occurrence: None)
  Receive Date: 20121127
  Receipt Date: 20121127
  Transmission Date: 20130627
  Serious: Yes (Hospitalization)
  Sender: FDA-Public Use
  Company Number: DSJ-2012-21396

PATIENT
  Age: 67 Year
  Sex: Female
  Weight: 51.6 kg

DRUGS (8)
  1. BENICAR [Suspect]
     Indication: HYPERTENSION
     Route: 048
     Dates: start: 2005, end: 2011
  2. BENICAR [Suspect]
     Indication: HYPERTENSION
     Route: 048
     Dates: start: 2011, end: 2011
  3. LEVOTHYROXINE SODIUM (LEVOTHYROXINE SODIUM) (LEVOTHYROXINE SODIUM) [Concomitant]
  4. PANTOPRAZOLE (PANTOPRAZOLE) (PANTOPRAZOLE) [Concomitant]
  5. SIMVASTATIN (SIMVASTATIN) (SIMVASTATIN) [Concomitant]
  6. CLONAZEPAM (CLONAZEPAM) (CLONAZEPAM) [Concomitant]
  7. PAROXETINE (PAROXETINE) (PAROXETINE) [Concomitant]
  8. PROPATHYL NITRATE (PROPATYLNITRATE) (PROPATYLNITRATE) [Concomitant]

REACTIONS (9)
  - Depression [None]
  - Weight decreased [None]
  - Chest pain [None]
  - Drug ineffective [None]
  - Dyspnoea [None]
  - Fatigue [None]
  - Arteriosclerosis [None]
  - Myalgia [None]
  - Weight increased [None]
